FAERS Safety Report 4952118-2 (Version None)
Quarter: 2006Q1

REPORT INFORMATION
  Report Type: 
  Country: None (occurrence: None)
  Receive Date: 20060127
  Receipt Date: 20050512
  Transmission Date: 20060701
  Serious: Yes (Other)
  Sender: FDA-Public Use
  Company Number: 05-05-0841

PATIENT
  Age: 30 Year
  Sex: Female

DRUGS (13)
  1. CLOZAPINE TABLETS, 12,5 MG, 25M, 50 MG, 100MG (CLOZAPINE) (TABLETS) [Suspect]
     Indication: BIPOLAR DISORDER
     Dosage: 375-400MG QD, QD, ORAL
     Route: 048
     Dates: start: 20040611, end: 20050406
  2. AMANTADINE HCL [Concomitant]
  3. QUETIAPINE [Concomitant]
  4. DIPHENHYDRAMINE HYDROCHLORIDE [Concomitant]
  5. ACETYLSALICYLIC ACID SRT [Concomitant]
  6. TAGAMET [Concomitant]
  7. DDAVP [Concomitant]
  8. LITHIUM [Concomitant]
  9. CLARITIN [Concomitant]
  10. SEROQUEL [Concomitant]
  11. DEPAKOTE [Concomitant]
  12. AVANDIA [Concomitant]
  13. LIPITOR [Concomitant]

REACTIONS (1)
  - NEUTROPENIA [None]
